FAERS Safety Report 6140022-6 (Version None)
Quarter: 2009Q2

REPORT INFORMATION
  Report Type: 
  Country: None (occurrence: None)
  Receive Date: 20090401
  Receipt Date: 20090326
  Transmission Date: 20091009
  Serious: Yes (Other)
  Sender: FDA-Public Use
  Company Number: BR-B.I. PHARMACEUTICALS,INC./RIDGEFIELD-2009-BR-00251BR

PATIENT
  Sex: Male

DRUGS (2)
  1. SPIRIVA [Suspect]
  2. MEDICINE FOR UNKNOWN INDICATION [Concomitant]

REACTIONS (2)
  - SKIN EXFOLIATION [None]
  - SKIN LESION [None]
